FAERS Safety Report 7436376 (Version 4)
Quarter: 2012Q4

REPORT INFORMATION
  Report Type: Report from Study
  Country: FR (occurrence: FR)
  Receive Date: 20100625
  Receipt Date: 20121226
  Transmission Date: 20130627
  Serious: Yes (Death, Other)
  Sender: FDA-Public Use
  Company Number: FR-SANOFI-AVENTIS-2010SA035573

PATIENT
  Age: 75 Year
  Sex: Female

DRUGS (6)
  1. DOCETAXEL [Suspect]
     Indication: BREAST CANCER
     Route: 041
     Dates: start: 20021113, end: 20021113
  2. DOCETAXEL [Suspect]
     Indication: BREAST CANCER
     Route: 041
     Dates: start: 20030226, end: 20030226
  3. CARBOPLATIN [Suspect]
     Indication: BREAST CANCER
     Route: 042
     Dates: start: 20021113, end: 20021113
  4. CARBOPLATIN [Suspect]
     Indication: BREAST CANCER
     Route: 042
     Dates: start: 20030226, end: 20030226
  5. HERCEPTIN ^GENENTECH^ [Suspect]
     Indication: BREAST CANCER
     Route: 042
     Dates: start: 20021112, end: 20030312
  6. HERCEPTIN ^GENENTECH^ [Suspect]
     Indication: BREAST CANCER
     Route: 042
     Dates: start: 20030410, end: 20031104

REACTIONS (1)
  - T-cell prolymphocytic leukaemia [Fatal]
